FAERS Safety Report 20893167 (Version 1)
Quarter: 2022Q2

REPORT INFORMATION
  Report Type: Spontaneous
  Country: TW (occurrence: TW)
  Receive Date: 20220531
  Receipt Date: 20220531
  Transmission Date: 20220721
  Serious: Yes (Other)
  Sender: FDA-Public Use
  Company Number: TW-drreddys-LIT/TAI/22/0150536

PATIENT
  Age: 52 Year
  Sex: Male

DRUGS (4)
  1. DOXORUBICIN [Suspect]
     Active Substance: DOXORUBICIN
     Indication: Thymoma malignant
  2. VINCRISTINE [Suspect]
     Active Substance: VINCRISTINE
     Indication: Thymoma malignant
  3. CISPLATIN [Suspect]
     Active Substance: CISPLATIN
     Indication: Thymoma malignant
  4. CYCLOPHOSPHAMIDE [Suspect]
     Active Substance: CYCLOPHOSPHAMIDE
     Indication: Thymoma malignant

REACTIONS (3)
  - Extrapulmonary tuberculosis [Recovered/Resolved]
  - Nocardiosis [Recovered/Resolved]
  - Disease progression [Unknown]
